FAERS Safety Report 8548448 (Version 2)
Quarter: 2012Q4

REPORT INFORMATION
  Report Type: 
  Country: US (occurrence: US)
  Receive Date: 20120507
  Receipt Date: 20120829
  Transmission Date: 20130627
  Serious: Yes (Hospitalization)
  Sender: FDA-Public Use
  Company Number: US-BAYER-2012-042600

PATIENT
  Age: 29 Year
  Sex: Female
  Weight: 77.1 kg

DRUGS (8)
  1. OCELLA [Suspect]
     Dosage: UNK
     Dates: start: 200904
  2. YAZ [Suspect]
     Dosage: UNK
     Dates: start: 20090417, end: 200905
  3. DOXYCYCLINE HYCLATE [Concomitant]
     Dosage: 100 mg, UNK
     Dates: start: 20090527
  4. PRILOSEC [Concomitant]
  5. MORPHINE SULFATE [Concomitant]
  6. REGLAN [Concomitant]
  7. UNASYN [Concomitant]
  8. PARAGARD [Concomitant]
     Dosage: UNK
     Dates: end: 20090413

REACTIONS (9)
  - Cholelithiasis [None]
  - Injury [None]
  - Pain [None]
  - Biliary dilatation [None]
  - Abdominal pain [None]
  - Gastrooesophageal reflux disease [None]
  - Decreased appetite [None]
  - Nausea [None]
  - Cholecystitis acute [None]
